FAERS Safety Report 6102915-5 (Version None)
Quarter: 2009Q1

REPORT INFORMATION
  Report Type: 
  Country: None (occurrence: None)
  Receive Date: 20090303
  Receipt Date: 20090303
  Transmission Date: 20090719
  Serious: No
  Sender: FDA-Public Use
  Company Number: None

PATIENT
  Age: 71 Year
  Sex: Male
  Weight: 127.0072 kg

DRUGS (2)
  1. TERAZOSIN HCL [Suspect]
     Indication: PROSTATOMEGALY
     Dosage: 1 CAP FOR 5 DAYS THEN 2 DAILY DAILY PO
     Route: 048
     Dates: start: 20090220, end: 20090222
  2. SULFAMETHOXAZOLE AND TRIMETHOPRIM DOUBLE STRENGTH [Suspect]
     Indication: CYSTITIS
     Dosage: 1 TABLEY 2 TIMES A DAY DAILY PO
     Route: 048
     Dates: start: 20090220, end: 20090222

REACTIONS (9)
  - CONFUSIONAL STATE [None]
  - DISORIENTATION [None]
  - DIZZINESS [None]
  - FATIGUE [None]
  - FEELING ABNORMAL [None]
  - GASTRIC DISORDER [None]
  - HEADACHE [None]
  - NAUSEA [None]
  - SOMNOLENCE [None]
